FAERS Safety Report 6407132-7 (Version None)
Quarter: 2009Q4

REPORT INFORMATION
  Report Type: 
  Country: None (occurrence: None)
  Receive Date: 20091020
  Receipt Date: 20090917
  Transmission Date: 20100525
  Serious: No
  Sender: FDA-Public Use
  Company Number: US-BAYER-200914754BCC

PATIENT
  Age: 63 Year
  Sex: Female
  Weight: 45 kg

DRUGS (3)
  1. ALEVE [Suspect]
     Indication: HERPES ZOSTER
     Dosage: UNIT DOSE: 220 MG
     Route: 048
     Dates: start: 20090917
  2. DILANTIN [Concomitant]
     Route: 065
  3. PRILOSEC [Concomitant]
     Indication: HERPES ZOSTER
     Route: 065

REACTIONS (1)
  - EYE PAIN [None]
